FAERS Safety Report 6095970-2 (Version None)
Quarter: 2009Q1

REPORT INFORMATION
  Report Type: 
  Country: None (occurrence: None)
  Receive Date: 20090227
  Receipt Date: 20080811
  Transmission Date: 20090719
  Serious: No
  Sender: FDA-Public Use
  Company Number: A0739778A

PATIENT
  Age: 25 Year
  Sex: Female
  Weight: 40 kg

DRUGS (5)
  1. LAMICTAL [Suspect]
     Indication: DEPRESSION
     Dosage: 150MG PER DAY
     Route: 048
     Dates: start: 20080501
  2. TOPAMAX [Concomitant]
  3. AMBIEN [Concomitant]
  4. EXCEDRIN [Concomitant]
  5. IBUPROFEN [Concomitant]

REACTIONS (1)
  - STOMATITIS [None]
